FAERS Safety Report 16171347 (Version 1)
Quarter: 2019Q2

REPORT INFORMATION
  Report Type: Spontaneous
  Country: US (occurrence: US)
  Receive Date: 20190408
  Receipt Date: 20190408
  Transmission Date: 20190711
  Serious: No
  Sender: FDA-Public Use
  Company Number: US-TARO-2018TAR00907

PATIENT
  Age: 62 Year
  Sex: Female
  Weight: 63.49 kg

DRUGS (3)
  1. FLUOROURACIL TOPICAL CREAM USP 5% [Suspect]
     Active Substance: FLUOROURACIL
     Indication: PRECANCEROUS SKIN LESION
     Dosage: A FINGERTIP OR Q-TIP SIZED AMOUNT, 2X/DAY
     Route: 061
     Dates: start: 20181213, end: 20181221
  2. VITAMIN A [Concomitant]
     Active Substance: VITAMIN A
  3. VITAMIN E [Concomitant]
     Active Substance: .ALPHA.-TOCOPHEROL

REACTIONS (7)
  - Lip pain [Recovering/Resolving]
  - Lip discolouration [Not Recovered/Not Resolved]
  - Off label use [Recovered/Resolved]
  - Product administered at inappropriate site [Recovered/Resolved]
  - Chemical burn [Not Recovered/Not Resolved]
  - Lip exfoliation [Not Recovered/Not Resolved]
  - Accidental exposure to product [Recovered/Resolved]

NARRATIVE: CASE EVENT DATE: 201812
